FAERS Safety Report 20714622 (Version 1)
Quarter: 2022Q2

REPORT INFORMATION
  Report Type: Spontaneous
  Country: US (occurrence: None)
  Receive Date: 20220415
  Receipt Date: 20220415
  Transmission Date: 20220721
  Serious: Yes (Hospitalization)
  Sender: FDA-Public Use
  Company Number: None

PATIENT
  Age: 3 Year
  Sex: Male
  Weight: 12.9 kg

DRUGS (6)
  1. DAUNORUBICIN [Suspect]
     Active Substance: DAUNORUBICIN
     Dates: end: 20220331
  2. ONCASPAR [Suspect]
     Active Substance: PEGASPARGASE
     Dates: end: 20220313
  3. VINCRISTINE SULFATE [Suspect]
     Active Substance: VINCRISTINE SULFATE
     Dates: end: 20220331
  4. CYTARABINE [Suspect]
     Active Substance: CYTARABINE
     Dates: end: 20220309
  5. DEXAMETHASONE [Suspect]
     Active Substance: DEXAMETHASONE
     Dates: end: 20220323
  6. METHOTREXATE [Suspect]
     Active Substance: METHOTREXATE
     Dates: end: 20220408

REACTIONS (8)
  - Sepsis [None]
  - Pancreatitis [None]
  - Colitis [None]
  - Thrombocytopenia [None]
  - Upper gastrointestinal haemorrhage [None]
  - Oxygen saturation decreased [None]
  - Acute respiratory failure [None]
  - Aspiration [None]

NARRATIVE: CASE EVENT DATE: 20220412
